FAERS Safety Report 13128459 (Version 2)
Quarter: 2017Q1

REPORT INFORMATION
  Report Type: Report from Study
  Country: US (occurrence: US)
  Receive Date: 20170118
  Receipt Date: 20170208
  Transmission Date: 20170428
  Serious: Yes (Death, Other)
  Sender: FDA-Public Use
  Company Number: US-GILEAD-2017-0253799

PATIENT
  Age: 79 Year
  Sex: Female

DRUGS (11)
  1. CALCIUM                            /00060701/ [Concomitant]
     Active Substance: CALCIUM
     Route: 048
  2. FUROSEMIDE. [Concomitant]
     Active Substance: FUROSEMIDE
  3. SYNTHROID [Concomitant]
     Active Substance: LEVOTHYROXINE SODIUM
  4. AMLODIPINE [Concomitant]
     Active Substance: AMLODIPINE BESYLATE
     Route: 048
  5. CARVEDILOL. [Concomitant]
     Active Substance: CARVEDILOL
     Route: 048
  6. PANTOPRAZOLE [Concomitant]
     Active Substance: PANTOPRAZOLE SODIUM
     Route: 048
  7. SPIRONOLACTONE. [Concomitant]
     Active Substance: SPIRONOLACTONE
     Route: 048
  8. MIRTAZAPINE. [Concomitant]
     Active Substance: MIRTAZAPINE
     Dosage: UNK
     Route: 048
     Dates: start: 20140905
  9. OLYSIO [Concomitant]
     Active Substance: SIMEPREVIR
     Indication: CHRONIC HEPATITIS C
     Dosage: UNK
     Route: 065
     Dates: start: 20140312, end: 20140612
  10. SOFOSBUVIR [Suspect]
     Active Substance: SOFOSBUVIR
     Indication: CHRONIC HEPATITIS C
     Dosage: UNK
     Route: 048
     Dates: start: 20140312, end: 20140612
  11. MAGNESIUM OXIDE. [Concomitant]
     Active Substance: MAGNESIUM OXIDE

REACTIONS (14)
  - Insomnia [Unknown]
  - Cerebrovascular accident [Unknown]
  - Abasia [Unknown]
  - Cerebrovascular accident [Unknown]
  - Platelet transfusion [Unknown]
  - Epistaxis [Unknown]
  - Gingival bleeding [Unknown]
  - Malaise [Unknown]
  - Coma [Unknown]
  - Death [Fatal]
  - Transfusion [Unknown]
  - Eye haemorrhage [Unknown]
  - Gastrointestinal disorder [Unknown]
  - Fatigue [Unknown]

NARRATIVE: CASE EVENT DATE: 20140106
